FAERS Safety Report 24090259 (Version 1)
Quarter: 2024Q3

REPORT INFORMATION
  Report Type: Report from Study
  Country: IT (occurrence: IT)
  Receive Date: 20240715
  Receipt Date: 20240715
  Transmission Date: 20241016
  Serious: Yes (Other)
  Sender: JOHNSON AND JOHNSON
  Company Number: None

PATIENT
  Age: 62 Year
  Sex: Female
  Weight: 55 kg

DRUGS (9)
  1. DARZALEX [Suspect]
     Active Substance: DARATUMUMAB
     Indication: Plasma cell myeloma
     Dosage: THERAPY START DATE  20/FEB/2024
     Route: 058
  2. THALIDOMIDE [Suspect]
     Active Substance: THALIDOMIDE
     Indication: Plasma cell myeloma
     Dosage: THERAPY START DATE  20/FEB/2024
     Route: 048
  3. BORTEZOMIB [Suspect]
     Active Substance: BORTEZOMIB
     Indication: Plasma cell myeloma
     Dosage: 1.3MG/M2, SUSPENDED ON 3/12/24 FOR TWO WEEKS AND THEN RESUMED AT A REDUCED DOSAGE OF 1MG/M2?THERAPY
     Route: 058
  4. CORDARONE [Concomitant]
     Active Substance: AMIODARONE HYDROCHLORIDE
     Dosage: 200 MG 1 CP DIE
     Route: 048
  5. BACTRIM [Concomitant]
     Active Substance: SULFAMETHOXAZOLE\TRIMETHOPRIM
     Dosage: BACTRIM FORTE 160 MG + 800 MG 1 CP MONDAY, WEDNESDAY AND FRIDAY
     Route: 048
  6. PANTOPRAZOLE SODIUM [Concomitant]
     Active Substance: PANTOPRAZOLE SODIUM
     Dosage: 40 MG 1 CP DIE
     Route: 048
  7. VALACYCLOVIR HYDROCHLORIDE [Concomitant]
     Active Substance: VALACYCLOVIR HYDROCHLORIDE
     Dosage: 500 MG 1 CP DIE
     Route: 048
  8. DEXAMETHASONE [Concomitant]
     Active Substance: DEXAMETHASONE
     Indication: Plasma cell myeloma
     Dosage: DEXAMETHASONE 0.2% ORAL DROPS: 1 BOTTLE (20 MG) EVERY TUESDAY AND WEDNESDAY
     Route: 048
     Dates: start: 20240220
  9. EDOXABAN TOSYLATE [Concomitant]
     Active Substance: EDOXABAN TOSYLATE
     Dosage: 30 MG 1 CP DIE
     Route: 048
     Dates: start: 20240220

REACTIONS (6)
  - Polyneuropathy [Recovering/Resolving]
  - Constipation [Not Recovered/Not Resolved]
  - Hypoaesthesia [Recovering/Resolving]
  - Asthenia [Not Recovered/Not Resolved]
  - Dyspepsia [Recovered/Resolved]
  - Pain in extremity [Recovering/Resolving]

NARRATIVE: CASE EVENT DATE: 20230301
